FAERS Safety Report 8486451-7 (Version None)
Quarter: 2012Q3

REPORT INFORMATION
  Report Type: 
  Country: None (occurrence: None)
  Receive Date: 20120703
  Receipt Date: 20120625
  Transmission Date: 20120928
  Serious: Yes (Hospitalization)
  Sender: FDA-Public Use
  Company Number: JP-VERTEX PHARMACEUTICALS INC.-AE-2012-006671

PATIENT
  Age: 64 Year
  Sex: Male

DRUGS (15)
  1. TELAVIC (TELAPREVIR) [Suspect]
     Route: 048
     Dates: start: 20120329
  2. LOXONIN [Concomitant]
     Route: 048
     Dates: start: 20120307
  3. PEGINTERFERON ALFA-2B [Concomitant]
     Indication: HEPATITIS C
     Route: 058
     Dates: start: 20120309, end: 20120323
  4. PEGINTERFERON ALFA-2B [Concomitant]
     Route: 058
     Dates: start: 20120329
  5. TELAVIC (TELAPREVIR) [Suspect]
     Indication: HEPATITIS C
     Route: 048
     Dates: start: 20120309, end: 20120328
  6. REBETOL [Concomitant]
     Route: 048
     Dates: start: 20120329
  7. FEBURIC [Concomitant]
     Route: 048
     Dates: start: 20120309
  8. REBETOL [Concomitant]
     Indication: HEPATITIS C
     Route: 048
     Dates: start: 20120309, end: 20120322
  9. ATELEC [Concomitant]
     Route: 048
     Dates: start: 20120312
  10. NAUZELIN OD [Concomitant]
     Route: 048
     Dates: start: 20120313
  11. EPADEL [Concomitant]
     Route: 048
     Dates: start: 20120309
  12. AMOBAN [Concomitant]
     Route: 048
     Dates: start: 20120307
  13. REBETOL [Concomitant]
     Route: 048
     Dates: start: 20120323, end: 20120328
  14. DOGMATYL [Concomitant]
     Route: 048
     Dates: start: 20120315
  15. LANSOPRAZOLE [Concomitant]
     Route: 048
     Dates: start: 20120502, end: 20120513

REACTIONS (3)
  - OFF LABEL USE [None]
  - RASH [None]
  - MALAISE [None]
